FAERS Safety Report 5212212-8 (Version None)
Quarter: 2006Q4

REPORT INFORMATION
  Report Type: 
  Country: None (occurrence: None)
  Receive Date: 20061115
  Receipt Date: 20060714
  Transmission Date: 20070319
  Serious: No
  Sender: FDA-Public Use
  Company Number: 200614109BWH

PATIENT
  Age: 65 Year
  Sex: Male
  Weight: 98.4306 kg

DRUGS (5)
  1. NEXAVAR [Suspect]
     Indication: RENAL CELL CARCINOMA STAGE IV
     Dosage: 400 MG,200 MG, BID, ORAL
     Route: 048
     Dates: start: 20060601, end: 20060613
  2. NEXAVAR [Suspect]
     Indication: RENAL CELL CARCINOMA STAGE IV
     Dosage: 400 MG,200 MG, BID, ORAL
     Route: 048
     Dates: start: 20060711
  3. ASPIRIN [Concomitant]
  4. INHALER (NOS) [Concomitant]
  5. ALEVE [Concomitant]

REACTIONS (16)
  - ALOPECIA [None]
  - BLOOD URIC ACID INCREASED [None]
  - CHONDROCALCINOSIS PYROPHOSPHATE [None]
  - ERYTHEMA [None]
  - FATIGUE [None]
  - GAIT DISTURBANCE [None]
  - HAIR GROWTH ABNORMAL [None]
  - HAIR TEXTURE ABNORMAL [None]
  - NEUROPATHY PERIPHERAL [None]
  - PAIN IN EXTREMITY [None]
  - PRURITUS [None]
  - RASH [None]
  - RASH ERYTHEMATOUS [None]
  - RASH GENERALISED [None]
  - SKIN DISCOLOURATION [None]
  - TEMPERATURE REGULATION DISORDER [None]
